FAERS Safety Report 14293653 (Version 1)
Quarter: 2017Q4

REPORT INFORMATION
  Report Type: Report from Study
  Country: FR (occurrence: FR)
  Receive Date: 20171216
  Receipt Date: 20171216
  Transmission Date: 20180321
  Serious: Yes (Other)
  Sender: FDA-Public Use
  Company Number: FR-ROCHE-2041037

PATIENT
  Age: 75 Year
  Sex: Male

DRUGS (2)
  1. BEVACIZUMAB. [Suspect]
     Active Substance: BEVACIZUMAB
     Indication: HEREDITARY HAEMORRHAGIC TELANGIECTASIA
  2. BEVACIZUMAB. [Suspect]
     Active Substance: BEVACIZUMAB
     Indication: CARDIAC FAILURE HIGH OUTPUT
     Route: 042

REACTIONS (1)
  - Epididymitis [Unknown]
